FAERS Safety Report 5635677-6 (Version None)
Quarter: 2008Q1

REPORT INFORMATION
  Report Type: 
  Country: None (occurrence: None)
  Receive Date: 20080220
  Receipt Date: 20080205
  Transmission Date: 20080703
  Serious: Yes (Death)
  Sender: FDA-Public Use
  Company Number: 8029622

PATIENT
  Age: 66 Year
  Sex: Female
  Weight: 60 kg

DRUGS (11)
  1. KEPPRA [Suspect]
     Dosage: 1 G 2/D IV
     Route: 042
     Dates: start: 20080123, end: 20080127
  2. CMC EYE DROPS [Concomitant]
  3. ARTIFICIAL TEARS [Concomitant]
  4. MAXOLON [Concomitant]
  5. TRAMADOL HCL [Concomitant]
  6. POTASSIUM CHLORIDE [Concomitant]
  7. INSULIN  INFUSION [Concomitant]
  8. DEXAMETHASONE TAB [Concomitant]
  9. VITAMIN K [Concomitant]
  10. ROCEPHIN [Concomitant]
  11. PCM [Concomitant]

REACTIONS (1)
  - BRAIN STEM HAEMORRHAGE [None]
